FAERS Safety Report 17880738 (Version 1)
Quarter: 2020Q2

REPORT INFORMATION
  Report Type: Spontaneous
  Country: US (occurrence: US)
  Receive Date: 20200610
  Receipt Date: 20200610
  Transmission Date: 20200714
  Serious: Yes (Hospitalization)
  Sender: FDA-Public Use
  Company Number: US-MYLANLABS-2020M1055180

PATIENT
  Age: 50 Year
  Sex: Female

DRUGS (3)
  1. BOTOX [Suspect]
     Active Substance: ONABOTULINUMTOXINA
     Indication: VULVOVAGINAL PAIN
     Dosage: INJECTION IN LEVATOR MUSCLES
     Route: 030
  2. KENALOG [Suspect]
     Active Substance: TRIAMCINOLONE ACETONIDE
     Indication: VULVOVAGINAL PAIN
     Dosage: TRIGGER POINT INJECTIONS
     Route: 065
  3. ROPIVACAINE. [Suspect]
     Active Substance: ROPIVACAINE HYDROCHLORIDE
     Indication: VULVOVAGINAL PAIN
     Dosage: TRIGGER POINT INJECTIONS
     Route: 065

REACTIONS (1)
  - Drug ineffective [Unknown]
